FAERS Safety Report 9476736 (Version 2)
Quarter: 2013Q3

REPORT INFORMATION
  Report Type: Spontaneous
  Country: US (occurrence: US)
  Receive Date: 20130826
  Receipt Date: 20130826
  Transmission Date: 20140515
  Serious: No
  Sender: FDA-Public Use
  Company Number: US-BRISTOL-MYERS SQUIBB COMPANY-18595686

PATIENT
  Age: 47 Year
  Sex: Female
  Weight: 77.1 kg

DRUGS (7)
  1. KENALOG-40 INJ [Suspect]
     Route: 008
     Dates: start: 20130306
  2. TOPAMAX [Concomitant]
  3. REQUIP [Concomitant]
  4. XANAX [Concomitant]
  5. BACLOFEN [Concomitant]
  6. PAXIL [Concomitant]
  7. VITAMIN B12 [Concomitant]

REACTIONS (3)
  - Paraesthesia [Recovering/Resolving]
  - Pain [Recovering/Resolving]
  - Off label use [Unknown]
